FAERS Safety Report 23817068 (Version 2)
Quarter: 2024Q2

REPORT INFORMATION
  Report Type: Spontaneous
  Country: CA (occurrence: CA)
  Receive Date: 20240504
  Receipt Date: 20240514
  Transmission Date: 20240716
  Serious: Yes (Other)
  Sender: FDA-Public Use
  Company Number: None

PATIENT
  Age: 84 Year
  Sex: Male

DRUGS (2)
  1. HYDROXYCHLOROQUINE [Suspect]
     Active Substance: HYDROXYCHLOROQUINE
     Indication: Rheumatoid arthritis
     Route: 065
  2. METHOTREXATE [Suspect]
     Active Substance: METHOTREXATE
     Indication: Rheumatoid arthritis
     Route: 065

REACTIONS (17)
  - Axonal neuropathy [Recovering/Resolving]
  - Balance disorder [Recovering/Resolving]
  - Borderline leprosy [Recovering/Resolving]
  - Fall [Recovering/Resolving]
  - Granulomatous dermatitis [Recovering/Resolving]
  - Hypoaesthesia [Recovering/Resolving]
  - Lymphocytic infiltration [Recovering/Resolving]
  - Mononeuropathy multiplex [Recovering/Resolving]
  - Neuropathy peripheral [Recovering/Resolving]
  - Pain in extremity [Recovering/Resolving]
  - Paraesthesia [Recovering/Resolving]
  - Rash [Recovering/Resolving]
  - Skin hypertrophy [Recovering/Resolving]
  - Skin plaque [Recovering/Resolving]
  - Infection reactivation [Not Recovered/Not Resolved]
  - Peripheral sensory neuropathy [Not Recovered/Not Resolved]
  - Type 1 lepra reaction [Not Recovered/Not Resolved]
